FAERS Safety Report 4358466-1 (Version None)
Quarter: 2004Q2

REPORT INFORMATION
  Report Type: 
  Country: None (occurrence: None)
  Receive Date: 20040511
  Receipt Date: 20040426
  Transmission Date: 20050107
  Serious: Yes (Hospitalization)
  Sender: FDA-Public Use
  Company Number: 2004027743

PATIENT
  Age: 61 Year
  Sex: Female
  Weight: 53 kg

DRUGS (3)
  1. FELDENE [Suspect]
     Indication: ILL-DEFINED DISORDER
     Dosage: 20 MG (DAILY), ORAL
     Route: 048
     Dates: start: 20040301, end: 20040310
  2. ESOMEPRAZOLE (ESOMEPRAZOLE) [Suspect]
     Indication: ILL-DEFINED DISORDER
     Dosage: 20 MG (DAILY), ORAL
     Route: 048
     Dates: start: 20040301, end: 20040310
  3. DI-GESIC (DEXTROPROPOXYPHENE, PARACETAMOL) [Concomitant]

REACTIONS (3)
  - MOUTH ULCERATION [None]
  - PARAESTHESIA [None]
  - PURPURA [None]
